FAERS Safety Report 20661267 (Version 1)
Quarter: 2022Q2

REPORT INFORMATION
  Report Type: Spontaneous
  Country: FR (occurrence: FR)
  Receive Date: 20220401
  Receipt Date: 20220401
  Transmission Date: 20220721
  Serious: Yes (Other)
  Sender: FDA-Public Use
  Company Number: FR-AFSSAPS-NY20220981

PATIENT
  Age: 67 Year
  Sex: Female

DRUGS (2)
  1. ACETAMINOPHEN [Suspect]
     Active Substance: ACETAMINOPHEN
     Indication: Pain
     Dosage: UNK
     Route: 048
     Dates: end: 202101
  2. LUCENTIS [Suspect]
     Active Substance: RANIBIZUMAB
     Indication: Product used for unknown indication
     Dosage: 1 DOSAGE FORM ( WEEK)
     Route: 031
     Dates: start: 2020

REACTIONS (1)
  - Fixed eruption [Not Recovered/Not Resolved]

NARRATIVE: CASE EVENT DATE: 20201201
